FAERS Safety Report 10591770 (Version 2)
Quarter: 2014Q4

REPORT INFORMATION
  Report Type: Spontaneous
  Country: US (occurrence: US)
  Receive Date: 20141118
  Receipt Date: 20141118
  Transmission Date: 20150529
  Serious: Yes (Life-Threatening, Hospitalization)
  Sender: FDA-Public Use
  Company Number: US-ASTRAZENECA-2012SE08824

PATIENT
  Age: 71 Year
  Sex: Female

DRUGS (6)
  1. DILTIAZAM [Concomitant]
     Indication: ATRIAL FIBRILLATION
     Route: 048
  2. GLIPIZIDE. [Concomitant]
     Active Substance: GLIPIZIDE
     Indication: DIABETES MELLITUS
     Route: 048
     Dates: start: 2007
  3. VITAMINS [Concomitant]
     Active Substance: VITAMINS
     Indication: VITAMIN SUPPLEMENTATION
  4. NEXIUM [Suspect]
     Active Substance: ESOMEPRAZOLE MAGNESIUM
     Indication: GASTROOESOPHAGEAL REFLUX DISEASE
     Route: 048
     Dates: start: 2004
  5. SYMBICORT [Suspect]
     Active Substance: BUDESONIDE\FORMOTEROL FUMARATE DIHYDRATE
     Indication: DYSPNOEA
     Dosage: 160 MCG/4.5 MCG, TWO PUFFS, TWO TIMES A DAY
     Route: 055
  6. DIGOXIN. [Concomitant]
     Active Substance: DIGOXIN
     Indication: CARDIAC DISORDER
     Route: 048

REACTIONS (7)
  - Atrial fibrillation [Unknown]
  - Diabetes mellitus [Unknown]
  - Off label use [Not Recovered/Not Resolved]
  - Post procedural complication [Unknown]
  - Emphysema [Unknown]
  - Drug dose omission [Unknown]
  - Apparent death [Unknown]

NARRATIVE: CASE EVENT DATE: 2007
